FAERS Safety Report 5770326-8 (Version None)
Quarter: 2008Q2

REPORT INFORMATION
  Report Type: 
  Country: None (occurrence: None)
  Receive Date: 20080613
  Receipt Date: 20080425
  Transmission Date: 20081010
  Serious: No
  Sender: FDA-Public Use
  Company Number: US-ABBOTT-08P-163-0449125-00

PATIENT
  Sex: Female
  Weight: 105.78 kg

DRUGS (21)
  1. HUMIRA [Suspect]
     Indication: RHEUMATOID ARTHRITIS
     Route: 058
     Dates: start: 20070901, end: 20080101
  2. HUMIRA [Suspect]
     Indication: SCLERITIS
     Route: 058
     Dates: start: 20080101
  3. PREDNISONE TAB [Concomitant]
     Indication: RHEUMATOID ARTHRITIS
     Route: 048
  4. ALPRAZOLAM [Concomitant]
     Indication: PANIC ATTACK
     Route: 048
  5. SULFASALAZINE [Concomitant]
     Indication: RHEUMATOID ARTHRITIS
     Route: 048
  6. OMEPRAZOLE [Concomitant]
     Indication: GASTROOESOPHAGEAL REFLUX DISEASE
     Route: 048
  7. POTASSIUM CHLORIDE [Concomitant]
     Indication: MINERAL SUPPLEMENTATION
     Route: 048
  8. LOTEPREDNOL ETABONATE [Concomitant]
     Indication: SCLERITIS
     Route: 061
  9. COMBIGAN [Concomitant]
     Indication: GLAUCOMA
     Route: 061
  10. COMBIGAN [Concomitant]
     Indication: SCLERITIS
  11. ETODOLAC [Concomitant]
     Indication: RHEUMATOID ARTHRITIS
     Route: 048
  12. VENLAFAXINE HCL [Concomitant]
     Indication: DEPRESSION
     Route: 048
  13. LEVOTHYROXINE SODIUM [Concomitant]
     Indication: HYPOTHYROIDISM
     Route: 048
  14. MINOCYCLINE HCL [Concomitant]
     Indication: ANTIBIOTIC PROPHYLAXIS
     Route: 048
  15. HYDROCHLOROTHIAZIDE [Concomitant]
     Indication: HYPERTENSION
     Route: 048
  16. ESTROGENIC SUBSTANCE [Concomitant]
     Indication: HORMONE REPLACEMENT THERAPY
     Route: 048
  17. OBETROL [Concomitant]
     Indication: ATTENTION DEFICIT/HYPERACTIVITY DISORDER
     Dosage: 1.5 PILL IN AM AND 1.0 PILL IN PM
     Route: 048
  18. TRAZODONE HCL [Concomitant]
     Indication: SLEEP DISORDER THERAPY
     Dosage: 2 AT BED TIME
     Route: 048
  19. SIMVASTATIN [Concomitant]
     Indication: BLOOD CHOLESTEROL INCREASED
     Route: 048
  20. CHORAZAPAM [Concomitant]
     Indication: RESTLESS LEGS SYNDROME
     Route: 048
  21. ESCITALOPRAM OXALATE [Concomitant]
     Indication: DEPRESSION
     Route: 048

REACTIONS (2)
  - ACCIDENTAL EXPOSURE [None]
  - PHOTOPHOBIA [None]
